FAERS Safety Report 20822864 (Version 1)
Quarter: 2022Q2

REPORT INFORMATION
  Report Type: Spontaneous
  Country: JP (occurrence: JP)
  Receive Date: 20220512
  Receipt Date: 20220512
  Transmission Date: 20220720
  Serious: Yes (Death, Other)
  Sender: FDA-Public Use
  Company Number: JP-JAZZ-2020-JP-018525

PATIENT
  Age: 69 Year
  Sex: Male
  Weight: 68.9 kg

DRUGS (1)
  1. DEFITELIO [Suspect]
     Active Substance: DEFIBROTIDE SODIUM
     Indication: Venoocclusive liver disease
     Dosage: 25 MICROGRAM/KILOGRAM, QD
     Route: 042
     Dates: start: 20200201, end: 20200222

REACTIONS (1)
  - Acute myeloid leukaemia [Fatal]
